FAERS Safety Report 9322226 (Version 1)
Quarter: 2013Q2

REPORT INFORMATION
  Report Type: Spontaneous
  Country: JP (occurrence: None)
  Receive Date: 20130529
  Receipt Date: 20130529
  Transmission Date: 20140414
  Serious: Yes (Other)
  Sender: FDA-Public Use
  Company Number: FK201301738

PATIENT
  Age: 73 Year
  Sex: Male

DRUGS (6)
  1. CARBOPLATIN [Suspect]
     Indication: LUNG NEOPLASM MALIGNANT
     Dosage: AUC 6
  2. PACLITAXEL [Suspect]
     Indication: LUNG NEOPLASM MALIGNANT
     Dosage: ON DAYS 1, 8 AND 15
  3. BEVACIZUMAB [Suspect]
     Indication: LUNG NEOPLASM MALIGNANT
  4. GIMERACIL (GIMERACIL) [Concomitant]
  5. OTERACIL (OTERACIL) [Concomitant]
  6. TEGAFUR (TEGAFUR) [Concomitant]

REACTIONS (1)
  - Pneumothorax [None]
